FAERS Safety Report 17654702 (Version 1)
Quarter: 2020Q2

REPORT INFORMATION
  Report Type: Report from Study
  Country: PK (occurrence: PK)
  Receive Date: 20200410
  Receipt Date: 20200410
  Transmission Date: 20200713
  Serious: Yes (Other)
  Sender: FDA-Public Use
  Company Number: PK-ROCHE-2582968

PATIENT
  Age: 55 Year

DRUGS (2)
  1. BEVACIZUMAB. [Suspect]
     Active Substance: BEVACIZUMAB
     Indication: DIABETIC RETINOPATHY
     Route: 050
  2. OFLOXACIN. [Concomitant]
     Active Substance: OFLOXACIN
     Dosage: FOR 5 DAYS
     Route: 065

REACTIONS (3)
  - Off label use [Unknown]
  - Endophthalmitis [Unknown]
  - Intentional product use issue [Unknown]
